FAERS Safety Report 7312634-5 (Version None)
Quarter: 2011Q1

REPORT INFORMATION
  Report Type: 
  Country: None (occurrence: None)
  Receive Date: 20110224
  Receipt Date: 20101213
  Transmission Date: 20110831
  Serious: Yes (Life-Threatening, Hospitalization)
  Sender: FDA-Public Use
  Company Number: US-BAYER-201041731NA

PATIENT

DRUGS (1)
  1. AVELOX [Suspect]
     Indication: SINUSITIS
     Dosage: UNK UNK, UNK
     Route: 048
     Dates: start: 20101108, end: 20101108

REACTIONS (13)
  - NERVOUSNESS [None]
  - EAR DISCOMFORT [None]
  - MENTAL STATUS CHANGES [None]
  - PHARYNGEAL OEDEMA [None]
  - SWELLING FACE [None]
  - ANAPHYLACTIC SHOCK [None]
  - TACHYCARDIA [None]
  - EYE SWELLING [None]
  - OCULAR HYPERAEMIA [None]
  - LIP SWELLING [None]
  - ANAPHYLACTIC REACTION [None]
  - SWOLLEN TONGUE [None]
  - ERYTHEMA [None]
